FAERS Safety Report 13405667 (Version 1)
Quarter: 2017Q2

REPORT INFORMATION
  Report Type: Spontaneous
  Country: US (occurrence: US)
  Receive Date: 20170405
  Receipt Date: 20170405
  Transmission Date: 20170830
  Serious: No
  Sender: FDA-Public Use
  Company Number: US-PFIZER INC-2017146991

PATIENT
  Sex: Female

DRUGS (2)
  1. NEURONTIN [Suspect]
     Active Substance: GABAPENTIN
     Dosage: 100 MG, 3X/DAY
  2. NEURONTIN [Suspect]
     Active Substance: GABAPENTIN
     Dosage: 300 MG, 3X/DAY

REACTIONS (4)
  - Peripheral swelling [Unknown]
  - Diplopia [Unknown]
  - Irritability [Unknown]
  - Dizziness [Unknown]
